FAERS Safety Report 4926858-5 (Version None)
Quarter: 2006Q1

REPORT INFORMATION
  Report Type: 
  Country: None (occurrence: None)
  Receive Date: 20060228
  Receipt Date: 20050706
  Transmission Date: 20060701
  Serious: No
  Sender: FDA-Public Use
  Company Number: US-GLAXOSMITHKLINE-A0565168A

PATIENT
  Age: 32 Year
  Sex: Male
  Weight: 83.6 kg

DRUGS (6)
  1. LAMICTAL [Suspect]
     Indication: BIPOLAR DISORDER
     Dosage: 100MG TWICE PER DAY
     Route: 048
     Dates: start: 20050601, end: 20050626
  2. KLONOPIN [Concomitant]
     Dosage: .5MG AS REQUIRED
     Route: 048
  3. PRILOSEC [Concomitant]
  4. ZYRTEC [Concomitant]
     Dosage: 10MG PER DAY
     Route: 048
  5. NASONEX [Concomitant]
     Dates: start: 20011109
  6. ELAVIL [Concomitant]
     Dosage: 25MG PER DAY
     Dates: start: 20011108

REACTIONS (10)
  - CHEST PAIN [None]
  - ERYTHEMA [None]
  - FLUSHING [None]
  - MOUTH ULCERATION [None]
  - MYALGIA [None]
  - ORAL SOFT TISSUE DISORDER [None]
  - PHOTOSENSITIVITY REACTION [None]
  - PRURITUS [None]
  - RASH [None]
  - TENDERNESS [None]
